FAERS Safety Report 16274540 (Version 1)
Quarter: 2019Q2

REPORT INFORMATION
  Report Type: Spontaneous
  Country: DE (occurrence: DE)
  Receive Date: 20190504
  Receipt Date: 20190504
  Transmission Date: 20190711
  Serious: Yes (Death)
  Sender: FDA-Public Use
  Company Number: DE-INSYS THERAPEUTICS, INC-INS201905-000365

PATIENT
  Age: 43 Year
  Sex: Female

DRUGS (9)
  1. 3, 4- METHYLENEDIOXYPYROVALERONE [Suspect]
     Active Substance: METHYLENEDIOXYPYROVALERONE HYDROCHLORIDE
  2. DIAZEPAM. [Suspect]
     Active Substance: DIAZEPAM
  3. NORDIAZEPAM [Suspect]
     Active Substance: NORDAZEPAM
  4. TRAZODONE [Suspect]
     Active Substance: TRAZODONE HYDROCHLORIDE
  5. FENTANYL. [Suspect]
     Active Substance: FENTANYL
     Indication: PRODUCT USED FOR UNKNOWN INDICATION
  6. GABAPENTIN. [Suspect]
     Active Substance: GABAPENTIN
  7. NORFENTANYL [Suspect]
     Active Substance: NORFENTANYL
  8. NORVENLAFAXINE [Suspect]
     Active Substance: N-DESMETHYLVENLAFAXINE
  9. TRAMADOL. [Suspect]
     Active Substance: TRAMADOL

REACTIONS (1)
  - Toxicity to various agents [Fatal]
